FAERS Safety Report 23994995 (Version 1)
Quarter: 2024Q2

REPORT INFORMATION
  Report Type: Report from Study
  Country: CA (occurrence: CA)
  Receive Date: 20240620
  Receipt Date: 20240620
  Transmission Date: 20240716
  Serious: Yes (Hospitalization, Other)
  Sender: FDA-Public Use
  Company Number: CA-SAMSUNG BIOEPIS-SB-2024-17056

PATIENT
  Age: 78 Year
  Sex: Male
  Weight: 84.7 kg

DRUGS (3)
  1. RENFLEXIS [Suspect]
     Active Substance: INFLIXIMAB-ABDA
     Indication: Crohn^s disease
     Route: 042
     Dates: start: 20240417
  2. RENFLEXIS [Suspect]
     Active Substance: INFLIXIMAB-ABDA
     Route: 042
     Dates: start: 20240417
  3. RENFLEXIS [Suspect]
     Active Substance: INFLIXIMAB-ABDA
     Route: 065
     Dates: start: 20240612

REACTIONS (5)
  - Cholecystitis infective [Recovering/Resolving]
  - Malaise [Unknown]
  - Weight decreased [Unknown]
  - Inappropriate schedule of product administration [Unknown]
  - Off label use [Unknown]

NARRATIVE: CASE EVENT DATE: 20240501
